FAERS Safety Report 10874246 (Version 1)
Quarter: 2015Q1

REPORT INFORMATION
  Report Type: Spontaneous
  Country: US (occurrence: None)
  Receive Date: 20150224
  Receipt Date: 20150224
  Transmission Date: 20150721
  Serious: Yes (Hospitalization, Other)
  Sender: FDA-Public Use
  Company Number: US-ZYDUS-006799

PATIENT
  Age: 37 Year
  Sex: Male

DRUGS (1)
  1. AMIODARONE (AMIODARONE) [Suspect]
     Active Substance: AMIODARONE
     Indication: ATRIAL FIBRILLATION

REACTIONS (4)
  - Lupus-like syndrome [None]
  - Thrombocytopenia [None]
  - Arthralgia [None]
  - Heart rate irregular [None]
